FAERS Safety Report 7543255-7 (Version None)
Quarter: 2011Q2

REPORT INFORMATION
  Report Type: 
  Country: None (occurrence: None)
  Receive Date: 20110613
  Receipt Date: 20110531
  Transmission Date: 20111010
  Serious: Yes (Hospitalization)
  Sender: FDA-Public Use
  Company Number: JP-JNJFOC-20100508282

PATIENT
  Age: 67 Year
  Sex: Male
  Weight: 73 kg

DRUGS (16)
  1. REMICADE [Suspect]
     Route: 042
     Dates: start: 20100916
  2. AMARYL [Concomitant]
     Indication: DIABETES MELLITUS
     Route: 048
  3. AMLODIPINE [Concomitant]
     Indication: HYPERTENSION
     Route: 048
  4. ASPIRIN [Concomitant]
     Indication: MYOCARDIAL INFARCTION
     Route: 048
  5. LUPRAC [Concomitant]
     Indication: OEDEMA DUE TO RENAL DISEASE
     Route: 048
  6. REMICADE [Suspect]
     Indication: PSORIASIS
     Route: 042
     Dates: start: 20100331
  7. REMICADE [Suspect]
     Route: 042
     Dates: start: 20100415
  8. CLOBETASOL PROPIONATE [Concomitant]
     Indication: PSORIASIS
     Route: 003
  9. REMICADE [Suspect]
     Route: 042
     Dates: start: 20100708
  10. OXAROL [Concomitant]
     Indication: PSORIASIS
     Route: 003
  11. PANAPIDIN [Concomitant]
     Indication: MYOCARDIAL INFARCTION
     Route: 048
  12. MEROPENEM [Suspect]
     Indication: PNEUMONIA LEGIONELLA
     Route: 042
     Dates: start: 20100514, end: 20100516
  13. CARVEDILOL [Concomitant]
     Indication: HYPERTENSION
     Route: 048
  14. ACTOS [Concomitant]
     Indication: DIABETES MELLITUS
     Route: 048
  15. PRAVASTATIN SODIUM [Concomitant]
     Indication: HYPERLIPIDAEMIA
     Route: 048
  16. ENALAPRIL MALEATE [Concomitant]
     Indication: HYPERTENSION
     Route: 048

REACTIONS (2)
  - HEPATIC FUNCTION ABNORMAL [None]
  - PNEUMONIA LEGIONELLA [None]
